FAERS Safety Report 25710419 (Version 1)
Quarter: 2025Q3

REPORT INFORMATION
  Report Type: Spontaneous
  Country: US (occurrence: None)
  Receive Date: 20250820
  Receipt Date: 20250820
  Transmission Date: 20251021
  Serious: Yes (Other)
  Sender: FDA-CTU
  Company Number: None

PATIENT
  Age: 44 Year
  Sex: Male
  Weight: 90.45 kg

DRUGS (7)
  1. XELJANZ [Suspect]
     Active Substance: TOFACITINIB CITRATE
     Indication: Psoriatic arthropathy
     Dosage: OTHER QUANTITY : 0.5 TABLET(S);?FREQUENCY : TWICE A DAY;?
     Route: 048
     Dates: start: 20250731
  2. NAPROXEN [Concomitant]
     Active Substance: NAPROXEN
  3. ADVIL [Concomitant]
     Active Substance: IBUPROFEN
  4. PREDNISONE [Concomitant]
     Active Substance: PREDNISONE
  5. VITAMIN C [Concomitant]
     Active Substance: ASCORBIC ACID
  6. VITAMINS [Concomitant]
     Active Substance: VITAMINS
  7. HORSE CHESTNUT [Concomitant]
     Active Substance: HORSE CHESTNUT

REACTIONS (7)
  - Muscular weakness [None]
  - Fall [None]
  - Sleep disorder [None]
  - Disorientation [None]
  - Aggression [None]
  - Memory impairment [None]
  - Neuropsychiatric syndrome [None]

NARRATIVE: CASE EVENT DATE: 20250816
